FAERS Safety Report 7940539-5 (Version None)
Quarter: 2011Q4

REPORT INFORMATION
  Report Type: 
  Country: None (occurrence: None)
  Receive Date: 20111114
  Receipt Date: 20110302
  Transmission Date: 20120403
  Serious: Yes (Other)
  Sender: FDA-Public Use
  Company Number: 2011S1000136

PATIENT
  Age: 57 Year
  Sex: Male

DRUGS (2)
  1. CUBICIN [Suspect]
     Indication: OSTEOMYELITIS
  2. CUBICIN [Suspect]
     Indication: WOUND INFECTION

REACTIONS (1)
  - EOSINOPHILIC PNEUMONIA [None]
